FAERS Safety Report 9188434 (Version 2)
Quarter: 2013Q3

REPORT INFORMATION
  Report Type: Report from Study
  Country: JP (occurrence: JP)
  Receive Date: 20121205
  Receipt Date: 20130805
  Transmission Date: 20140515
  Serious: Yes (Other)
  Sender: FDA-Public Use
  Company Number: JP-VERTEX PHARMACEUTICALS INC.-2012-025541

PATIENT
  Age: 53 Year
  Sex: Female

DRUGS (8)
  1. VX-950 (TELAPREVIR) [Suspect]
     Indication: CHRONIC HEPATITIS C
     Dosage: 1500 MG, QD
     Route: 048
     Dates: start: 20120822
  2. RIBAVIRIN [Suspect]
     Indication: CHRONIC HEPATITIS C
     Dosage: 800 MG, QD
     Route: 048
     Dates: start: 20120822, end: 20120919
  3. RIBAVIRIN [Suspect]
     Dosage: 600 MG, QD
     Route: 048
     Dates: start: 20120926, end: 20121030
  4. RIBAVIRIN [Suspect]
     Dosage: 400 MG, QD
     Route: 048
     Dates: start: 20121031, end: 20121106
  5. RIBAVIRIN [Suspect]
     Dosage: 200 MG, QD
     Route: 048
     Dates: start: 20121107
  6. PEGINTERFERON ALFA-2B [Suspect]
     Indication: CHRONIC HEPATITIS C
     Dosage: 100 ?G, QW
     Route: 058
     Dates: start: 20120822, end: 20121025
  7. PEGINTERFERON ALFA-2B [Suspect]
     Dosage: 50 ?G, QW
     Route: 058
     Dates: start: 20121031
  8. ALLELOCK [Concomitant]
     Dosage: 10 MG, QD
     Route: 048
     Dates: start: 20120831, end: 20120831

REACTIONS (1)
  - White blood cell count decreased [Recovered/Resolved]
